FAERS Safety Report 9900046 (Version 1)
Quarter: 2014Q1

REPORT INFORMATION
  Report Type: Spontaneous
  Country: US (occurrence: US)
  Receive Date: 20140214
  Receipt Date: 20140214
  Transmission Date: 20141002
  Serious: No
  Sender: FDA-Public Use
  Company Number: US-VIVUS-2014V1000035

PATIENT
  Age: 47 Year
  Sex: Female
  Weight: 75.82 kg

DRUGS (3)
  1. QSYMIA 3.75MG/23MG [Suspect]
     Indication: WEIGHT DECREASED
     Route: 048
     Dates: start: 201312, end: 201312
  2. QSYMIA 7.5MG/46MG [Suspect]
     Indication: WEIGHT DECREASED
     Route: 048
     Dates: start: 201312
  3. MINIVELLE [Concomitant]
     Indication: OESTROGEN REPLACEMENT THERAPY
     Route: 062
     Dates: start: 201308

REACTIONS (4)
  - Salivary hypersecretion [Not Recovered/Not Resolved]
  - Headache [Not Recovered/Not Resolved]
  - Nausea [Not Recovered/Not Resolved]
  - Fatigue [Not Recovered/Not Resolved]
